FAERS Safety Report 5129081-7 (Version None)
Quarter: 2006Q4

REPORT INFORMATION
  Report Type: 
  Country: None (occurrence: None)
  Receive Date: 20061016
  Receipt Date: 20061016
  Transmission Date: 20070319
  Serious: Yes (Hospitalization, Other)
  Sender: FDA-Public Use
  Company Number: None

PATIENT
  Age: 65 Year
  Sex: Female

DRUGS (5)
  1. QUINAPRIL [Suspect]
     Indication: HYPERTENSION
     Dosage: PO
     Route: 048
  2. AMLODIPINE [Concomitant]
  3. MELOXICAM [Concomitant]
  4. MECLIZINE [Concomitant]
  5. TRIAMTERENE AND HYDROCHLOROTHIAZIDE [Concomitant]

REACTIONS (4)
  - DYSPHAGIA [None]
  - LARYNGOSPASM [None]
  - OROPHARYNGEAL SPASM [None]
  - PHARYNGEAL OEDEMA [None]
